FAERS Safety Report 5892989-9 (Version None)
Quarter: 2008Q3

REPORT INFORMATION
  Report Type: 
  Country: None (occurrence: None)
  Receive Date: 20080923
  Receipt Date: 20070619
  Transmission Date: 20090109
  Serious: No
  Sender: FDA-Public Use
  Company Number: US-ASTRAZENECA-2007UW14595

PATIENT
  Age: 71 Year
  Sex: Female

DRUGS (13)
  1. SEROQUEL [Suspect]
     Indication: INSOMNIA
     Route: 048
     Dates: end: 20040101
  2. SEROQUEL [Interacting]
     Indication: NEGATIVE THOUGHTS
     Route: 048
     Dates: end: 20040101
  3. SEROQUEL [Interacting]
     Route: 048
     Dates: start: 20070101
  4. SEROQUEL [Interacting]
     Route: 048
     Dates: start: 20070101
  5. ANTI-DEPRESSANT MEDICATION [Interacting]
  6. ANTI-SEIZURE MEDICATION [Interacting]
  7. PLAVIX [Concomitant]
  8. PROPRANOLOL [Concomitant]
  9. MAXZIDE [Concomitant]
  10. CELEBREX [Concomitant]
  11. PROTONIX [Concomitant]
  12. CADUIT [Concomitant]
  13. ACTONEL [Concomitant]

REACTIONS (2)
  - ABNORMAL DREAMS [None]
  - DRUG INTERACTION [None]
